FAERS Safety Report 9267248 (Version 1)
Quarter: 2013Q2

REPORT INFORMATION
  Report Type: Spontaneous
  Country: MX (occurrence: MX)
  Receive Date: 20130502
  Receipt Date: 20130502
  Transmission Date: 20140414
  Serious: Yes (Death, Other)
  Sender: FDA-Public Use
  Company Number: PHHY2013MX042708

PATIENT
  Age: 42 Year
  Sex: Female

DRUGS (6)
  1. CICLOSPORIN [Suspect]
     Dosage: 5 MG/KG, UNK
     Route: 048
  2. METHOTREXATE [Concomitant]
     Dosage: 5 MG/M2, ON DAYS +1, +3, +5, AND +11
  3. ONDASETRON [Concomitant]
  4. THALIDOMIDE [Concomitant]
  5. DEXAMETHASONE [Concomitant]
  6. BORTEZOMIB [Concomitant]

REACTIONS (2)
  - Chronic graft versus host disease [Fatal]
  - Graft versus host disease [Unknown]
